FAERS Safety Report 4306789-4 (Version None)
Quarter: 2004Q1

REPORT INFORMATION
  Report Type: 
  Country: None (occurrence: None)
  Receive Date: 20040225
  Receipt Date: 20040209
  Transmission Date: 20041129
  Serious: Yes (Hospitalization)
  Sender: FDA-Public Use
  Company Number: S03-ESP-04801-01

PATIENT
  Age: 83 Year
  Sex: Female

DRUGS (13)
  1. MEMANTINE HCL [Suspect]
     Indication: DEMENTIA ALZHEIMER'S TYPE
     Dosage: 15 MG QD; PO
     Route: 048
     Dates: start: 20030423, end: 20030618
  2. TORSEMIDE [Concomitant]
  3. RISPERIDONE [Concomitant]
  4. GLYCERYL TRINITRATE [Concomitant]
  5. ACETYLSALICYLIC ACID [Concomitant]
  6. CAFINITRINA [Concomitant]
  7. LORAZEPAM [Concomitant]
  8. DEXIBUPROFEN [Concomitant]
  9. LACTULOSE [Concomitant]
  10. ENALAPRIL MALEATE [Concomitant]
  11. CLOPIDOGREL BISULFATE [Concomitant]
  12. ZALEPLON [Concomitant]
  13. AMLODIPINE [Concomitant]

REACTIONS (8)
  - ACTIVITIES OF DAILY LIVING IMPAIRED [None]
  - BLOOD PRESSURE DECREASED [None]
  - CARDIOMEGALY [None]
  - DEMENTIA [None]
  - DISEASE PROGRESSION [None]
  - MYOCARDIAL INFARCTION [None]
  - RESPIRATORY FAILURE [None]
  - RESPIRATORY TRACT INFECTION [None]
